FAERS Safety Report 8081986-3 (Version None)
Quarter: 2012Q1

REPORT INFORMATION
  Report Type: 
  Country: None (occurrence: None)
  Receive Date: 20120130
  Receipt Date: 20120120
  Transmission Date: 20120608
  Serious: Yes (Hospitalization)
  Sender: FDA-Public Use
  Company Number: US-ASTRAZENECA-2012SE04552

PATIENT
  Age: 56 Year
  Sex: Female

DRUGS (2)
  1. ZOMIG [Suspect]
     Route: 048
  2. NEXIUM [Suspect]
     Route: 048

REACTIONS (7)
  - RENAL IMPAIRMENT [None]
  - URINARY TRACT INFECTION [None]
  - PYREXIA [None]
  - HYPERTENSION [None]
  - BRONCHITIS [None]
  - ABDOMINAL PAIN UPPER [None]
  - MALAISE [None]
